FAERS Safety Report 10542520 (Version 1)
Quarter: 2014Q4

REPORT INFORMATION
  Report Type: Spontaneous
  Country: GR (occurrence: GR)
  Receive Date: 20141027
  Receipt Date: 20141027
  Transmission Date: 20150529
  Serious: Yes (Other)
  Sender: FDA-Public Use
  Company Number: GR-THROMBOGENICS NV-SPO-2014-1350

PATIENT

DRUGS (1)
  1. JETREA [Suspect]
     Active Substance: OCRIPLASMIN
     Dosage: 0.125 MG, ONE TIME DOSE
     Route: 031

REACTIONS (1)
  - Corneal disorder [Unknown]
